FAERS Safety Report 22598899 (Version 1)
Quarter: 2023Q2

REPORT INFORMATION
  Report Type: Spontaneous
  Country: US (occurrence: None)
  Receive Date: 20230614
  Receipt Date: 20230614
  Transmission Date: 20230721
  Serious: No
  Sender: FDA-Public Use
  Company Number: US-MDD US Operations-MDD202212-004091

PATIENT
  Age: 49 Year

DRUGS (4)
  1. APOKYN [Suspect]
     Active Substance: APOMORPHINE HYDROCHLORIDE
     Indication: Parkinsonism
  2. ATORVASTATIN [Concomitant]
     Active Substance: ATORVASTATIN
     Indication: Thyroid disorder
     Dosage: NOT PROVIDED
  3. ROPINIROLE [Concomitant]
     Active Substance: ROPINIROLE
     Indication: Thyroid disorder
     Dosage: NOT PROVIDED
  4. LEVOTHYROXINE [Concomitant]
     Active Substance: LEVOTHYROXINE
     Indication: Thyroid disorder
     Dosage: NOT PROVIDED

REACTIONS (1)
  - Seizure [Recovered/Resolved]
